FAERS Safety Report 9604661 (Version 1)
Quarter: 2013Q4

REPORT INFORMATION
  Report Type: Spontaneous
  Country: US (occurrence: US)
  Receive Date: 20131008
  Receipt Date: 20131008
  Transmission Date: 20140711
  Serious: Yes (Death, Other)
  Sender: FDA-Public Use
  Company Number: US-UCBSA-099690

PATIENT
  Age: 5 Month
  Sex: Female

DRUGS (19)
  1. LEVETIRACETAM [Suspect]
     Indication: STATUS EPILEPTICUS
     Dosage: 40 MG/KG/DAY
  2. LEVETIRACETAM [Suspect]
     Indication: STATUS EPILEPTICUS
     Dosage: 80 MG/KG/DAY
  3. LORAZEPAM [Concomitant]
     Indication: STATUS EPILEPTICUS
     Dosage: 0.4 MG/KG
  4. LORAZEPAM [Concomitant]
     Indication: STATUS EPILEPTICUS
     Dosage: 0.1 MG/KG
  5. PHENOBARBITAL [Concomitant]
     Indication: CONVULSION
     Dosage: 30 MG/KG
  6. PHENOBARBITAL [Concomitant]
     Indication: CONVULSION
     Dosage: 40 MG/KG
  7. PHENOBARBITAL [Concomitant]
     Indication: CONVULSION
     Dosage: 5 MG/KG/DAY
  8. MANNITOL [Concomitant]
     Indication: CONVULSION
  9. FOSPHENYTOIN [Concomitant]
     Indication: STATUS EPILEPTICUS
     Dosage: 30 MG/KG, 120 MG
  10. FOSPHENYTOIN [Concomitant]
     Indication: STATUS EPILEPTICUS
     Dosage: 6 MG/KG/DAY
  11. MIDAZOLAM [Concomitant]
     Indication: STATUS EPILEPTICUS
     Dosage: 0.1 MG/KG/H, 0.4 MG/H
  12. MIDAZOLAM [Concomitant]
     Indication: STATUS EPILEPTICUS
     Dosage: 0.3 MG/KG/H (1.2 MG/H)
  13. PENTOBARBITAL [Concomitant]
     Indication: STATUS EPILEPTICUS
     Dosage: 10 MG/KG/H
  14. PENTOBARBITAL [Concomitant]
     Indication: STATUS EPILEPTICUS
     Dosage: WEANED BY 1 MG/KG/H OVER 12 H.
  15. PENTOBARBITAL [Concomitant]
     Indication: STATUS EPILEPTICUS
     Dosage: 5 MG/KG/ H
  16. PENTOBARBITAL [Concomitant]
     Indication: STATUS EPILEPTICUS
     Dosage: WEANED DOWN TO 2 MG/KG/H
  17. DOPAMINE [Concomitant]
     Indication: HYPOTENSION
  18. EPINEPHRINE [Concomitant]
  19. NOREPINEPHRINE [Concomitant]

REACTIONS (9)
  - Death [Fatal]
  - Pneumatosis intestinalis [Unknown]
  - Sepsis [Unknown]
  - Septic shock [Unknown]
  - Lactic acidosis [Unknown]
  - Hypotension [Unknown]
  - Hyperglycaemia [Unknown]
  - Hypokalaemia [Unknown]
  - Abdominal compartment syndrome [Unknown]
